FAERS Safety Report 8817583 (Version 1)
Quarter: 2012Q4

REPORT INFORMATION
  Report Type: Report from Study
  Country: RU (occurrence: RU)
  Receive Date: 20121001
  Receipt Date: 20121001
  Transmission Date: 20130627
  Serious: Yes (Hospitalization)
  Sender: FDA-Public Use
  Company Number: RU-UCBSA-8011316

PATIENT
  Age: 41 Year
  Sex: Female
  Weight: 65.5 kg

DRUGS (9)
  1. CERTOLIZUMAB PEGOL [Suspect]
     Indication: CROHN^S DISEASE
     Dosage: - Nr of doses :3
     Route: 058
     Dates: start: 20041101, end: 20041128
  2. CERTOLIZUMAB PEGOL [Suspect]
     Indication: CROHN^S DISEASE
     Dosage: Dose Freq.: ONCE MONTHLY - Nr of doses :5
     Route: 058
     Dates: start: 20041226, end: 20050420
  3. CERTOLIZUMAB PEGOL [Suspect]
     Indication: CROHN^S DISEASE
     Dosage: Dose Freq.: ONCE MONTHLY - Nr of doses :4
     Route: 058
     Dates: start: 20050518
  4. AZATHIOPRINE [Concomitant]
     Indication: CROHN^S DISEASE
     Dosage: Dose Freq.: DAILY
     Route: 048
     Dates: start: 20040809
  5. MESALAZINE [Concomitant]
     Indication: CROHN^S DISEASE
     Route: 048
     Dates: start: 20040508
  6. OMEPRAZOLE [Concomitant]
     Indication: CROHN^S DISEASE
     Route: 048
     Dates: start: 20040508
  7. MEBEVERINE [Concomitant]
     Indication: CROHN^S DISEASE
     Route: 048
     Dates: start: 20040718
  8. LOPERAMIDE [Concomitant]
     Indication: CROHN^S DISEASE
     Route: 048
     Dates: start: 20050129
  9. CYANOCOBALAMINE [Concomitant]
     Indication: CROHN^S DISEASE
     Dosage: Dose Freq.: ONCE MONTHLY
     Route: 030
     Dates: start: 20040508

REACTIONS (2)
  - Calculus ureteric [Recovered/Resolved]
  - Pyelonephritis [Recovered/Resolved]
